FAERS Safety Report 11131083 (Version 8)
Quarter: 2015Q4

REPORT INFORMATION
  Report Type: Spontaneous
  Country: US (occurrence: US)
  Receive Date: 20150522
  Receipt Date: 20151230
  Transmission Date: 20160304
  Serious: Yes (Other)
  Sender: FDA-Public Use
  Company Number: US-009507513-1505USA007871

PATIENT
  Age: 26 Year
  Sex: Female
  Weight: 58.5 kg

DRUGS (1)
  1. IMPLANON [Suspect]
     Active Substance: ETONOGESTREL
     Dosage: 1 ROD PER 3 YEARS
     Route: 059
     Dates: start: 20120516, end: 2015

REACTIONS (5)
  - Medical device complication [Recovered/Resolved]
  - Surgery [Recovered/Resolved]
  - Incorrect drug administration duration [Unknown]
  - Device difficult to use [Recovered/Resolved]
  - No adverse event [Unknown]

NARRATIVE: CASE EVENT DATE: 2015
